FAERS Safety Report 5055954-X (Version None)
Quarter: 2006Q3

REPORT INFORMATION
  Report Type: 
  Country: None (occurrence: None)
  Receive Date: 20060720
  Receipt Date: 20060710
  Transmission Date: 20061208
  Serious: Yes (Hospitalization)
  Sender: FDA-Public Use
  Company Number: FR-BRISTOL-MYERS SQUIBB COMPANY-13441100

PATIENT
  Age: 78 Year
  Sex: Female

DRUGS (15)
  1. GLUCOPHAGE [Suspect]
     Indication: DIABETES MELLITUS NON-INSULIN-DEPENDENT
     Route: 048
     Dates: start: 20050905, end: 20060522
  2. ADANCOR [Concomitant]
  3. ZOPICLONE [Concomitant]
  4. RANITIDINE [Concomitant]
  5. FUROSEMIDE [Concomitant]
  6. ACETAMINOPHEN [Concomitant]
  7. TAREG [Concomitant]
  8. LERCAN [Concomitant]
  9. HEMI-DAONIL [Concomitant]
  10. DEXTROPROPOXYPHENE HCL + APAP [Concomitant]
  11. PREVISCAN [Concomitant]
  12. SIMVASTATIN [Concomitant]
  13. DISCOTRINE [Concomitant]
  14. RILMENIDINE [Concomitant]
  15. AMIODARONE CHLORHYDRATE [Concomitant]

REACTIONS (7)
  - ACIDOSIS [None]
  - BLOOD CREATINE [None]
  - DEHYDRATION [None]
  - DIARRHOEA [None]
  - HYPERKALAEMIA [None]
  - HYPONATRAEMIA [None]
  - RENAL FAILURE ACUTE [None]
